FAERS Safety Report 6473782-5 (Version None)
Quarter: 2009Q4

REPORT INFORMATION
  Report Type: 
  Country: None (occurrence: None)
  Receive Date: 20091204
  Receipt Date: 20091124
  Transmission Date: 20100525
  Serious: Yes (Death, Hospitalization)
  Sender: FDA-Public Use
  Company Number: JP-JNJFOC-20091106073

PATIENT
  Sex: Male
  Weight: 51 kg

DRUGS (9)
  1. REMICADE [Suspect]
     Dosage: 4 TOTAL INFUSIONS
     Route: 042
     Dates: start: 20090710, end: 20091009
  2. REMICADE [Suspect]
     Indication: RHEUMATOID ARTHRITIS
     Dosage: 3 INFUSIONS ON UNSPECIFIED DATES
     Route: 042
     Dates: start: 20090710, end: 20091009
  3. METOLATE [Suspect]
     Indication: RHEUMATOID ARTHRITIS
     Route: 048
  4. PREDONINE [Suspect]
     Indication: RHEUMATOID ARTHRITIS
     Route: 048
  5. BONALON [Concomitant]
     Indication: OSTEOPOROSIS
     Route: 048
  6. TAKEPRON [Concomitant]
     Indication: PROPHYLAXIS
     Route: 048
  7. ISCOTIN [Concomitant]
     Indication: TUBERCULOSIS
     Route: 048
  8. RIFADIN [Concomitant]
     Indication: TUBERCULOSIS
     Route: 048
  9. PYDOXAL [Concomitant]
     Indication: TUBERCULOSIS
     Route: 048

REACTIONS (2)
  - INTERSTITIAL LUNG DISEASE [None]
  - PNEUMOCYSTIS JIROVECI PNEUMONIA [None]
